FAERS Safety Report 8256123-2 (Version None)
Quarter: 2012Q2

REPORT INFORMATION
  Report Type: 
  Country: None (occurrence: None)
  Receive Date: 20120403
  Receipt Date: 20120314
  Transmission Date: 20120825
  Serious: Yes (Other)
  Sender: FDA-Public Use
  Company Number: US-ROCHE-1055036

PATIENT
  Sex: Female
  Weight: 84.444 kg

DRUGS (1)
  1. XELODA [Suspect]
     Indication: BREAST CANCER METASTATIC
     Route: 048
     Dates: start: 20120207

REACTIONS (5)
  - INSOMNIA [None]
  - MUSCULOSKELETAL DISCOMFORT [None]
  - FALL [None]
  - FATIGUE [None]
  - NAUSEA [None]
